FAERS Safety Report 7804497-6 (Version None)
Quarter: 2011Q4

REPORT INFORMATION
  Report Type: 
  Country: None (occurrence: None)
  Receive Date: 20111010
  Receipt Date: 20110930
  Transmission Date: 20120403
  Serious: Yes (Hospitalization, Other)
  Sender: FDA-Public Use
  Company Number: PHHY2011CA84101

PATIENT
  Sex: Male

DRUGS (4)
  1. CANNABIS [Suspect]
     Dosage: UNK UKN, UNK
  2. AMPHETAMINE SULFATE [Suspect]
     Dosage: UNK UKN, UNK
  3. CLOZAPINE [Suspect]
     Indication: SCHIZOAFFECTIVE DISORDER
     Dosage: UNK UKN, UNK
     Route: 048
     Dates: start: 20101101
  4. VALPROATE SODIUM [Concomitant]
     Dosage: 1000 MG, UNK

REACTIONS (7)
  - PSYCHIATRIC DECOMPENSATION [None]
  - THERAPEUTIC RESPONSE DECREASED [None]
  - DYSARTHRIA [None]
  - DRUG DEPENDENCE [None]
  - ANTIPSYCHOTIC DRUG LEVEL INCREASED [None]
  - EXPRESSIVE LANGUAGE DISORDER [None]
  - DELIRIUM [None]
